FAERS Safety Report 15929547 (Version 1)
Quarter: 2019Q1

REPORT INFORMATION
  Report Type: Spontaneous
  Country: US (occurrence: US)
  Receive Date: 20190206
  Receipt Date: 20190206
  Transmission Date: 20190417
  Serious: No
  Sender: FDA-Public Use
  Company Number: US-SA-2019SA031938

PATIENT
  Age: 65 Year
  Sex: Male

DRUGS (2)
  1. AVAPRO [Suspect]
     Active Substance: IRBESARTAN
     Dosage: 150 MG, Q12H
  2. AVAPRO [Suspect]
     Active Substance: IRBESARTAN
     Dosage: 300 MG, QD

REACTIONS (6)
  - Myalgia [Recovering/Resolving]
  - Headache [Recovered/Resolved]
  - Insomnia [Unknown]
  - Abdominal pain [Not Recovered/Not Resolved]
  - Diarrhoea [Recovering/Resolving]
  - Arthralgia [Recovering/Resolving]
